FAERS Safety Report 8037908 (Version 2)
Quarter: 2012Q4

REPORT INFORMATION
  Report Type: 
  Country: FR (occurrence: FR)
  Receive Date: 20110715
  Receipt Date: 20120920
  Transmission Date: 20130627
  Serious: Yes (Congenital Anomaly)
  Sender: FDA-Public Use
  Company Number: FR-GILEAD-2011-0041616

PATIENT
  Age: 0 Year
  Sex: Male

DRUGS (2)
  1. VIREAD [Suspect]
     Indication: HEPATITIS B
     Route: 064
     Dates: start: 20100901
  2. PROPRANOLOL [Suspect]
     Indication: PORTAL HYPERTENSION
     Route: 064
     Dates: start: 201004

REACTIONS (1)
  - Neonatal respiratory distress syndrome [Recovered/Resolved]
